FAERS Safety Report 15775656 (Version 3)
Quarter: 2019Q2

REPORT INFORMATION
  Report Type: Spontaneous
  Country: CO (occurrence: CO)
  Receive Date: 20181231
  Receipt Date: 20190403
  Transmission Date: 20190711
  Serious: Yes (Hospitalization, Other)
  Sender: FDA-Public Use
  Company Number: CO-AMGEN-COLSP2018185807

PATIENT
  Age: 67 Year
  Sex: Male

DRUGS (1)
  1. ENBREL [Suspect]
     Active Substance: ETANERCEPT
     Indication: RHEUMATOID ARTHRITIS
     Dosage: 50 MILLIGRAM
     Route: 058
     Dates: start: 2015, end: 201806

REACTIONS (8)
  - Angina pectoris [Unknown]
  - Ear injury [Unknown]
  - Respiratory disorder [Unknown]
  - Myocardial infarction [Unknown]
  - Pain in extremity [Not Recovered/Not Resolved]
  - Cardiac disorder [Unknown]
  - Arthralgia [Not Recovered/Not Resolved]
  - Pharyngeal injury [Unknown]

NARRATIVE: CASE EVENT DATE: 201805
